FAERS Safety Report 5143215-X (Version None)
Quarter: 2006Q4

REPORT INFORMATION
  Report Type: 
  Country: None (occurrence: None)
  Receive Date: 20061030
  Receipt Date: 20061015
  Transmission Date: 20070319
  Serious: Yes (Hospitalization)
  Sender: FDA-Public Use
  Company Number: JP200610002659

PATIENT
  Age: 21 Year
  Sex: Female
  Weight: 34.6 kg

DRUGS (7)
  1. OLANZAPINE [Suspect]
     Indication: SCHIZOPHRENIA, CATATONIC TYPE
     Dosage: 2.5 MG, DAILY (1/D), ORAL
     Route: 048
     Dates: start: 20060804, end: 20060806
  2. OLANZAPINE [Suspect]
     Indication: SCHIZOPHRENIA, CATATONIC TYPE
     Dosage: 2.5 MG, DAILY (1/D), ORAL
     Route: 048
     Dates: start: 20060807, end: 20060808
  3. ZYPREXA [Suspect]
     Indication: SCHIZOPHRENIA, CATATONIC TYPE
     Dosage: SEE IMAGE, ORAL
     Route: 048
     Dates: start: 20060804, end: 20060806
  4. ZYPREXA [Suspect]
     Indication: SCHIZOPHRENIA, CATATONIC TYPE
     Dosage: SEE IMAGE, ORAL
     Route: 048
     Dates: start: 20060807, end: 20060808
  5. HALOPERIDOL [Concomitant]
  6. ROHYPNOL                 (FLUNITRAZEPAM) [Concomitant]
  7. LORAZEPAM [Concomitant]

REACTIONS (1)
  - ILEUS PARALYTIC [None]
